FAERS Safety Report 8098311-4 (Version None)
Quarter: 2012Q1

REPORT INFORMATION
  Report Type: 
  Country: None (occurrence: None)
  Receive Date: 20120129
  Receipt Date: 20111026
  Transmission Date: 20120608
  Serious: Yes (Other)
  Sender: FDA-Public Use
  Company Number: US-ABBOTT-11P-163-0860165-00

PATIENT
  Sex: Female
  Weight: 70.5 kg

DRUGS (7)
  1. OMEPRAZOLE [Concomitant]
     Indication: GASTROOESOPHAGEAL REFLUX DISEASE
  2. PLAQUENIL [Suspect]
  3. HYDROCODONE BITARTRATE AND ACETAMINOPHEN [Concomitant]
     Indication: PAIN
     Dosage: 5/500 TWICE DAILY AS NEEDED
  4. AMLODIPINE [Concomitant]
     Indication: HYPERTENSION
  5. PREDNISONE TAB [Concomitant]
     Indication: RHEUMATOID ARTHRITIS
     Dosage: 5MG DAILY DECREASING OVER PAST FEW WEEKS
  6. PLAQUENIL [Suspect]
     Indication: PRODUCT USED FOR UNKNOWN INDICATION
  7. HUMIRA [Suspect]
     Indication: RHEUMATOID ARTHRITIS
     Dates: start: 20110517

REACTIONS (11)
  - INJECTION SITE PRURITUS [None]
  - INJECTION SITE PAIN [None]
  - INJECTION SITE DISCOLOURATION [None]
  - PROCEDURAL HAEMORRHAGE [None]
  - FATIGUE [None]
  - INJECTION SITE ERYTHEMA [None]
  - ARTHRALGIA [None]
  - ARTHRITIS [None]
  - PAIN IN EXTREMITY [None]
  - ANAEMIA [None]
  - INJECTION SITE SWELLING [None]
